FAERS Safety Report 4683157-7 (Version None)
Quarter: 2005Q2

REPORT INFORMATION
  Report Type: 
  Country: None (occurrence: None)
  Receive Date: 20050602
  Receipt Date: 20050307
  Transmission Date: 20051028
  Serious: No
  Sender: FDA-Public Use
  Company Number: USA050392625

PATIENT
  Sex: Female

DRUGS (7)
  1. CYMBALTA [Suspect]
     Indication: DEPRESSION
     Dates: start: 20050218
  2. CEFUROXIME [Concomitant]
  3. NEURONTIN(GABAPENTIN PFIZER) [Concomitant]
  4. HYDROCODONE BITARTRATE [Concomitant]
  5. DURAGESIC-100 [Concomitant]
  6. LEXAPRO [Concomitant]
  7. PROTONIX [Concomitant]

REACTIONS (3)
  - DRUG INEFFECTIVE [None]
  - PAIN IN EXTREMITY [None]
  - TENDONITIS [None]
